FAERS Safety Report 7942203-5 (Version None)
Quarter: 2011Q4

REPORT INFORMATION
  Report Type: 
  Country: None (occurrence: None)
  Receive Date: 20111128
  Receipt Date: 20111122
  Transmission Date: 20120403
  Serious: Yes (Hospitalization, Other)
  Sender: FDA-Public Use
  Company Number: US-ELI_LILLY_AND_COMPANY-US201110003655

PATIENT
  Age: 75 Year
  Sex: Female
  Weight: 79.365 kg

DRUGS (9)
  1. FUROSEMIDE [Concomitant]
  2. HYZAAR [Concomitant]
  3. METOPROLOL TARTRATE [Concomitant]
  4. EFFIENT [Suspect]
     Indication: CORONARY ARTERIAL STENT INSERTION
     Dosage: UNK, UNKNOWN
     Dates: end: 20111012
  5. NORVASC [Concomitant]
  6. HEPARIN [Concomitant]
     Indication: CORONARY ARTERIAL STENT INSERTION
     Dosage: UNK
     Route: 042
     Dates: start: 20111002
  7. GLIPIZIDE [Concomitant]
  8. LIPITOR [Concomitant]
  9. ASPIRIN [Concomitant]

REACTIONS (3)
  - WHITE BLOOD CELL COUNT DECREASED [None]
  - THROMBOTIC THROMBOCYTOPENIC PURPURA [None]
  - HEPARIN-INDUCED THROMBOCYTOPENIA [None]
